FAERS Safety Report 10312521 (Version 1)
Quarter: 2014Q3

REPORT INFORMATION
  Report Type: Report from Study
  Country: DE (occurrence: DE)
  Receive Date: 20140718
  Receipt Date: 20140718
  Transmission Date: 20150326
  Serious: Yes (Other)
  Sender: FDA-Public Use
  Company Number: DE-BEH-2013039069

PATIENT
  Sex: Male
  Weight: 80 kg

DRUGS (6)
  1. DECORTIN [Concomitant]
     Active Substance: PREDNISONE
  2. PREDNISOLONE 2.5 UG [Concomitant]
  3. PRIVIGEN [Suspect]
     Active Substance: HUMAN IMMUNOGLOBULIN G
     Indication: IMMUNE THROMBOCYTOPENIC PURPURA
     Dosage: INFUSIONSRATE 1.7 ML/MIN
     Route: 042
     Dates: start: 20121122, end: 20121122
  4. PRIVIGEN [Suspect]
     Active Substance: HUMAN IMMUNOGLOBULIN G
     Indication: CHRONIC LYMPHOCYTIC LEUKAEMIA
     Route: 042
     Dates: start: 20121217, end: 20121217
  5. ASPIRIN. [Concomitant]
     Active Substance: ASPIRIN
  6. THYRONAJOD [Concomitant]
     Active Substance: LEVOTHYROXINE SODIUM\POTASSIUM IODIDE

REACTIONS (4)
  - Oral herpes [Recovering/Resolving]
  - Tremor [Recovered/Resolved]
  - Pneumonia [Recovering/Resolving]
  - Chills [Recovered/Resolved]

NARRATIVE: CASE EVENT DATE: 20121122
